FAERS Safety Report 11849481 (Version 1)
Quarter: 2015Q4

REPORT INFORMATION
  Report Type: Spontaneous
  Country: FR (occurrence: FR)
  Receive Date: 20151218
  Receipt Date: 20151218
  Transmission Date: 20160305
  Serious: Yes (Life-Threatening, Hospitalization)
  Sender: FDA-Public Use
  Company Number: FR-ABBVIE-15K-056-1520444-00

PATIENT
  Age: 52 Year
  Sex: Female

DRUGS (3)
  1. INDOCID [Suspect]
     Active Substance: INDOMETHACIN
     Indication: ANKYLOSING SPONDYLITIS
     Dosage: IF NEEDED
     Route: 048
     Dates: end: 201407
  2. SOLUPRED [Suspect]
     Active Substance: PREDNISOLONE
     Indication: PRODUCT USED FOR UNKNOWN INDICATION
     Route: 048
     Dates: start: 201407, end: 201408
  3. HUMIRA [Suspect]
     Active Substance: ADALIMUMAB
     Indication: ANKYLOSING SPONDYLITIS
     Route: 058
     Dates: start: 201210, end: 201407

REACTIONS (6)
  - Brain natriuretic peptide increased [Unknown]
  - Acute pulmonary oedema [Recovering/Resolving]
  - Sinus tachycardia [Unknown]
  - Congestive cardiomyopathy [Unknown]
  - Mitral valve incompetence [Unknown]
  - Cardiac failure [Recovering/Resolving]

NARRATIVE: CASE EVENT DATE: 201406
